FAERS Safety Report 9530415 (Version 2)
Quarter: 2013Q3

REPORT INFORMATION
  Report Type: Spontaneous
  Country: US (occurrence: US)
  Receive Date: 20130918
  Receipt Date: 20130930
  Transmission Date: 20140515
  Serious: Yes (Hospitalization, Disabling)
  Sender: FDA-Public Use
  Company Number: US-009507513-1309USA004981

PATIENT
  Age: 68 Year
  Sex: Female

DRUGS (1)
  1. COZAAR [Suspect]
     Indication: HYPERTENSION
     Dosage: 100MG, 1 DAILY IN THE MORNING
     Route: 048
     Dates: start: 200709

REACTIONS (5)
  - Pneumonia [Recovered/Resolved]
  - Cardiac failure congestive [Recovered/Resolved]
  - Animal bite [Recovered/Resolved]
  - Drug ineffective [Unknown]
  - Rash [Unknown]
